FAERS Safety Report 6216798-6 (Version None)
Quarter: 2009Q2

REPORT INFORMATION
  Report Type: 
  Country: None (occurrence: None)
  Receive Date: 20090605
  Receipt Date: 20090529
  Transmission Date: 20091009
  Serious: Yes (Other)
  Sender: FDA-Public Use
  Company Number: GB-JNJCH-2009015252

PATIENT
  Age: 7 Year
  Sex: Female

DRUGS (3)
  1. ACETAMINOPHEN [Suspect]
     Indication: PYREXIA
     Dosage: TEXT:UNSPECIFIED HOURLY
     Route: 048
  2. CALPROFEN [Suspect]
     Indication: PYREXIA
     Dosage: TEXT:UNSPECIFIED HOURLY
     Route: 048
  3. ANTIBIOTICS [Concomitant]
     Indication: PHARYNGITIS
     Dosage: TEXT:UNKNOWN
     Route: 065

REACTIONS (2)
  - DRUG INEFFECTIVE [None]
  - MALAISE [None]
